FAERS Safety Report 6928087-2 (Version None)
Quarter: 2010Q3

REPORT INFORMATION
  Report Type: 
  Country: None (occurrence: None)
  Receive Date: 20100812
  Receipt Date: 20100727
  Transmission Date: 20110219
  Serious: Yes (Hospitalization)
  Sender: FDA-Public Use
  Company Number: 2010BI027355

PATIENT
  Age: 35 Year
  Sex: Female

DRUGS (7)
  1. ZEVALIN [Suspect]
     Indication: NON-HODGKIN'S LYMPHOMA RECURRENT
     Dosage: 0.4 MCI/KG; 1X;IV
     Route: 042
  2. ZEVALIN [Suspect]
     Indication: STEM CELL TRANSPLANT
     Dosage: 0.4 MCI/KG; 1X;IV
     Route: 042
  3. RITUXIMAB [Concomitant]
  4. FLUDARABINE [Concomitant]
  5. BUSULFAN [Concomitant]
  6. THYMOGLOBULIN [Concomitant]
  7. CYCLOSPORINE [Concomitant]

REACTIONS (5)
  - ACUTE GRAFT VERSUS HOST DISEASE IN SKIN [None]
  - DIARRHOEA [None]
  - NAUSEA [None]
  - STEM CELL TRANSPLANT [None]
  - VOMITING [None]
